FAERS Safety Report 7077204-5 (Version None)
Quarter: 2010Q4

REPORT INFORMATION
  Report Type: 
  Country: None (occurrence: None)
  Receive Date: 20101101
  Receipt Date: 20101027
  Transmission Date: 20110411
  Serious: Yes (Hospitalization)
  Sender: FDA-Public Use
  Company Number: EC-ROCHE-736817

PATIENT
  Sex: Female
  Weight: 74 kg

DRUGS (1)
  1. BONIVA [Suspect]
     Indication: OSTEOPOROSIS
     Dosage: FORM: INFUSION
     Route: 042
     Dates: start: 20101013

REACTIONS (2)
  - PAIN IN EXTREMITY [None]
  - PHLEBITIS [None]
